FAERS Safety Report 7438446-X (Version None)
Quarter: 2011Q2

REPORT INFORMATION
  Report Type: 
  Country: None (occurrence: None)
  Receive Date: 20110426
  Receipt Date: 20110420
  Transmission Date: 20111010
  Serious: Yes (Other)
  Sender: FDA-Public Use
  Company Number: US-GILEAD-2011-0038765

PATIENT
  Age: 42 Year
  Sex: Male

DRUGS (3)
  1. EMTRIVA [Suspect]
     Indication: HIV INFECTION
  2. VIREAD [Suspect]
     Indication: HIV INFECTION
  3. EFAVIRENZ [Suspect]
     Indication: HIV INFECTION

REACTIONS (2)
  - RENAL TUBULAR NECROSIS [None]
  - RHABDOMYOLYSIS [None]
